FAERS Safety Report 7042423-0 (Version None)
Quarter: 2010Q4

REPORT INFORMATION
  Report Type: 
  Country: None (occurrence: None)
  Receive Date: 20101013
  Receipt Date: 20091209
  Transmission Date: 20110411
  Serious: No
  Sender: FDA-Public Use
  Company Number: US-ASTRAZENECA-2009SE22884

PATIENT
  Age: 668 Month
  Sex: Female
  Weight: 123.4 kg

DRUGS (8)
  1. SYMBICORT [Suspect]
     Dosage: 160/4.5 UG
     Route: 055
     Dates: start: 20050101
  2. VENTOLIN [Concomitant]
  3. SINGULAIR [Concomitant]
  4. XOPENEX [Concomitant]
  5. GLIPURIDE [Concomitant]
     Indication: BLOOD GLUCOSE ABNORMAL
  6. PREDNISONE TAB [Concomitant]
  7. LISPERAL [Concomitant]
     Indication: BLOOD PRESSURE ABNORMAL
  8. ANTARA (MICRONIZED) [Concomitant]
     Indication: BLOOD CHOLESTEROL INCREASED

REACTIONS (2)
  - GASTROOESOPHAGEAL REFLUX DISEASE [None]
  - PALPITATIONS [None]
